FAERS Safety Report 4388735-0 (Version None)
Quarter: 2004Q3

REPORT INFORMATION
  Report Type: 
  Country: None (occurrence: None)
  Receive Date: 20040701
  Receipt Date: 20040629
  Transmission Date: 20050211
  Serious: Yes (Hospitalization)
  Sender: FDA-Public Use
  Company Number: CA-GLAXOSMITHKLINE-A0516577A

PATIENT
  Age: 66 Year
  Sex: Male
  Weight: 84 kg

DRUGS (9)
  1. CARVEDILOL [Suspect]
     Dosage: 9.375MG TWICE PER DAY
     Route: 048
     Dates: start: 20030303
  2. AMIODARONE HCL [Suspect]
     Indication: VENTRICULAR TACHYCARDIA
     Dates: start: 20030527, end: 20040409
  3. NITROPATCH [Concomitant]
  4. LASIX [Concomitant]
     Dosage: 40MG PER DAY
  5. ASPIRIN [Concomitant]
     Dosage: 81MG PER DAY
  6. ENALAPRIL MALEATE [Concomitant]
     Dosage: 10MG TWICE PER DAY
  7. LOSEC [Concomitant]
     Dosage: 20MG PER DAY
  8. SPIRONOLACTONE [Concomitant]
     Dosage: 50MG PER DAY
  9. LIPITOR [Concomitant]

REACTIONS (4)
  - CARDIAC FAILURE CONGESTIVE [None]
  - HYPOTENSION [None]
  - LIVER FUNCTION TEST ABNORMAL [None]
  - PNEUMONIA [None]
